FAERS Safety Report 6355029-3 (Version None)
Quarter: 2009Q3

REPORT INFORMATION
  Report Type: 
  Country: None (occurrence: None)
  Receive Date: 20090914
  Receipt Date: 20090908
  Transmission Date: 20100115
  Serious: Yes (Hospitalization)
  Sender: FDA-Public Use
  Company Number: B0592141A

PATIENT
  Sex: Female

DRUGS (10)
  1. KIVEXA [Suspect]
     Indication: HIV INFECTION
     Route: 048
     Dates: start: 19990101
  2. REYATAZ [Suspect]
     Indication: HIV INFECTION
     Dosage: 300MG TWICE PER DAY
     Route: 048
     Dates: start: 19990101
  3. NORVIR [Suspect]
     Indication: HIV INFECTION
     Dosage: 100MG TWICE PER DAY
     Route: 048
     Dates: start: 19990101
  4. PRAVASTATIN [Suspect]
     Dosage: 1UNIT PER DAY
     Route: 048
     Dates: start: 19990101
  5. LEVOTHYROXINE SODIUM [Concomitant]
     Indication: HYPOTHYROIDISM
     Route: 048
  6. DIAZEPAM [Concomitant]
     Dosage: 3UNIT PER DAY
     Route: 048
  7. SUBUTEX [Concomitant]
     Dosage: 8MG PER DAY
     Route: 060
  8. NORSET [Concomitant]
     Dosage: 1UNIT PER DAY
     Route: 048
  9. ZOLPIDEM [Concomitant]
     Indication: INSOMNIA
     Dosage: 1UNIT PER DAY
     Route: 048
  10. DI ANTALVIC [Concomitant]
     Indication: PAIN
     Route: 048

REACTIONS (7)
  - ARTERIAL STENOSIS [None]
  - CONDITION AGGRAVATED [None]
  - INTERMITTENT CLAUDICATION [None]
  - NEURALGIA [None]
  - POLYNEUROPATHY [None]
  - TAKAYASU'S ARTERITIS [None]
  - VASCULITIS [None]
